FAERS Safety Report 18155658 (Version 1)
Quarter: 2020Q3

REPORT INFORMATION
  Report Type: Spontaneous
  Country: BE (occurrence: BE)
  Receive Date: 20200817
  Receipt Date: 20200817
  Transmission Date: 20201103
  Serious: Yes (Other)
  Sender: FDA-Public Use
  Company Number: BE-ACCORD-195661

PATIENT
  Age: 66 Year
  Sex: Female

DRUGS (1)
  1. CAPECITABINE. [Suspect]
     Active Substance: CAPECITABINE
     Indication: TRIPLE NEGATIVE BREAST CANCER

REACTIONS (5)
  - Condition aggravated [Recovered/Resolved]
  - Necrosis [Recovered/Resolved]
  - Raynaud^s phenomenon [Recovered/Resolved]
  - Cyanosis [Recovered/Resolved]
  - Paraneoplastic syndrome [Recovered/Resolved]
